FAERS Safety Report 11935355 (Version 24)
Quarter: 2024Q1

REPORT INFORMATION
  Report Type: Spontaneous
  Country: US (occurrence: US)
  Receive Date: 20160121
  Receipt Date: 20240109
  Transmission Date: 20240410
  Serious: Yes (Hospitalization, Other)
  Sender: FDA-Public Use
  Company Number: US-PFIZER INC-2016017803

PATIENT
  Age: 74 Year
  Sex: Male
  Weight: 124 kg

DRUGS (5)
  1. BENEFIX [Suspect]
     Active Substance: COAGULATION FACTOR IX RECOMBINANT HUMAN\ISOPROPYL ALCOHOL
     Indication: Factor IX deficiency
     Dosage: UNK
  2. BENEFIX [Suspect]
     Active Substance: COAGULATION FACTOR IX RECOMBINANT HUMAN\ISOPROPYL ALCOHOL
     Indication: Haemorrhage
     Dosage: 5000 INTERNATIONAL UNIT (S) ONCE 20-30 MINUTES TO EGD
     Route: 042
  3. BENEFIX [Suspect]
     Active Substance: COAGULATION FACTOR IX RECOMBINANT HUMAN\ISOPROPYL ALCOHOL
     Dosage: 4000 IU ONCE A DAY FOLLOWING PROCEDURE AS INSTRUCTED BY HTC
     Route: 042
  4. BENEFIX [Suspect]
     Active Substance: COAGULATION FACTOR IX RECOMBINANT HUMAN\ISOPROPYL ALCOHOL
     Dosage: 2 DF, HE USED UP HIS 2 DOSES FOR THE SURGERY
  5. BENEFIX [Suspect]
     Active Substance: COAGULATION FACTOR IX RECOMBINANT HUMAN\ISOPROPYL ALCOHOL
     Dosage: 6000 IU AS DIRECTED BY HTC
     Route: 042

REACTIONS (13)
  - Pneumonia [Unknown]
  - Chest X-ray abnormal [Unknown]
  - Pruritus [Unknown]
  - Cardiac disorder [Unknown]
  - Post procedural haemorrhage [Unknown]
  - Blood pressure increased [Unknown]
  - Shoulder arthroplasty [Unknown]
  - Rectal haemorrhage [Unknown]
  - Haemorrhage [Not Recovered/Not Resolved]
  - Oral disorder [Unknown]
  - Tooth disorder [Unknown]
  - Memory impairment [Unknown]
  - Viral infection [Unknown]

NARRATIVE: CASE EVENT DATE: 20150401
